FAERS Safety Report 7082166-0 (Version None)
Quarter: 2010Q4

REPORT INFORMATION
  Report Type: 
  Country: None (occurrence: None)
  Receive Date: 20101103
  Receipt Date: 20101022
  Transmission Date: 20110411
  Serious: Yes (Other)
  Sender: FDA-Public Use
  Company Number: US-AMGEN-USACT2010001889

PATIENT

DRUGS (2)
  1. DENOSUMAB [Suspect]
     Indication: METASTASES TO BONE
  2. LUPRON [Concomitant]

REACTIONS (2)
  - HAEMORRHAGE [None]
  - OSTEONECROSIS OF JAW [None]
